FAERS Safety Report 11657380 (Version 2)
Quarter: 2015Q4

REPORT INFORMATION
  Report Type: Spontaneous
  Country: US (occurrence: US)
  Receive Date: 20151023
  Receipt Date: 20151027
  Transmission Date: 20160304
  Serious: Yes (Other)
  Sender: FDA-Public Use
  Company Number: US-ABBVIE-15P-163-1336921-00

PATIENT
  Age: 22 Year
  Sex: Female

DRUGS (1)
  1. LUPRON DEPOT [Suspect]
     Active Substance: LEUPROLIDE ACETATE
     Indication: PELVIC PAIN
     Route: 030
     Dates: start: 201409, end: 20150122

REACTIONS (4)
  - Vaginal haemorrhage [Unknown]
  - Off label use [Unknown]
  - Cerebrovascular accident [Unknown]
  - Migraine [Unknown]

NARRATIVE: CASE EVENT DATE: 201409
